FAERS Safety Report 6997752-3 (Version None)
Quarter: 2010Q3

REPORT INFORMATION
  Report Type: 
  Country: None (occurrence: None)
  Receive Date: 20100919
  Receipt Date: 20100909
  Transmission Date: 20110219
  Serious: Yes (Hospitalization)
  Sender: FDA-Public Use
  Company Number: PHHY2010KR59869

PATIENT
  Sex: Female

DRUGS (2)
  1. ACLASTA [Suspect]
     Indication: OSTEOPOROSIS
     Dosage: 5 MG YEARLY
     Route: 042
     Dates: start: 20080911
  2. ACLASTA [Suspect]
     Dosage: UNK
     Dates: start: 20091009

REACTIONS (2)
  - LIGAMENT OPERATION [None]
  - LIGAMENT RUPTURE [None]
